FAERS Safety Report 7091561-5 (Version None)
Quarter: 2010Q4

REPORT INFORMATION
  Report Type: 
  Country: None (occurrence: None)
  Receive Date: 20101105
  Receipt Date: 20101105
  Transmission Date: 20110411
  Serious: Yes (Hospitalization, Other)
  Sender: FDA-Public Use
  Company Number: None

PATIENT
  Age: 56 Year
  Sex: Female
  Weight: 81.6475 kg

DRUGS (1)
  1. GERIKOT 8.6 MG EACH GERICARE [Suspect]
     Indication: CONSTIPATION
     Dosage: 2 - 4 TABLETS OD FOR TWO DAYS PO
     Route: 048
     Dates: start: 20101030, end: 20101031

REACTIONS (6)
  - CHEST DISCOMFORT [None]
  - HEART RATE INCREASED [None]
  - HEART RATE IRREGULAR [None]
  - HYPERTENSION [None]
  - PRODUCT LABEL ISSUE [None]
  - SIMILAR REACTION ON PREVIOUS EXPOSURE TO DRUG [None]
